FAERS Safety Report 4779887-9 (Version None)
Quarter: 2005Q3

REPORT INFORMATION
  Report Type: 
  Country: None (occurrence: None)
  Receive Date: 20050914
  Receipt Date: 20050427
  Transmission Date: 20060218
  Serious: Yes (Hospitalization)
  Sender: FDA-Public Use
  Company Number: 163-20785-05050099

PATIENT
  Age: 70 Year
  Sex: Male

DRUGS (16)
  1. THALOMID [Suspect]
     Indication: MULTIPLE MYELOMA
     Dosage: 100MG EVERY OTHER DAY ALTERNATING WITH 50MG EVERY OTHER DAY, ORAL
     Route: 048
     Dates: start: 20030916, end: 20041124
  2. DEXAMETHASONE [Suspect]
     Indication: MULTIPLE MYELOMA
     Dosage: 40 MG, DAILY FOR 4 DAYS EVERY MONTH
     Dates: start: 20030916, end: 20040901
  3. CISPLATIN [Suspect]
     Indication: MULTIPLE MYELOMA
     Dates: start: 20030916
  4. CISPLATIN [Suspect]
     Indication: MULTIPLE MYELOMA
     Dates: start: 20031212
  5. ADRIAMYCIN PFS [Suspect]
     Indication: MULTIPLE MYELOMA
     Dates: start: 20030916
  6. ADRIAMYCIN PFS [Suspect]
     Indication: MULTIPLE MYELOMA
     Dates: start: 20031212
  7. CYCLOPHOSPHAMIDE [Suspect]
     Indication: MULTIPLE MYELOMA
     Dates: start: 20030916
  8. CYCLOPHOSPHAMIDE [Suspect]
     Indication: MULTIPLE MYELOMA
     Dates: start: 20031212
  9. ETOPOSIDE [Suspect]
     Indication: MULTIPLE MYELOMA
     Dates: start: 20030916
  10. ETOPOSIDE [Suspect]
     Indication: MULTIPLE MYELOMA
     Dates: start: 20031212
  11. ACYCLOVIR [Concomitant]
  12. BACTRIM DS (BACTRIM) (TABLETS) [Concomitant]
  13. MULTIVITAMIN [Concomitant]
  14. ZANTAC [Concomitant]
  15. CALCIUM (CALCIUM) [Concomitant]
  16. FOLIC ACID [Concomitant]

REACTIONS (5)
  - NEUTROPENIA [None]
  - PANCYTOPENIA [None]
  - RENAL FAILURE ACUTE [None]
  - ROTATOR CUFF SYNDROME [None]
  - THROMBOCYTOPENIA [None]
